FAERS Safety Report 18409258 (Version 1)
Quarter: 2020Q4

REPORT INFORMATION
  Report Type: Spontaneous
  Country: JP (occurrence: JP)
  Receive Date: 20201021
  Receipt Date: 20201021
  Transmission Date: 20210114
  Serious: Yes (Death)
  Sender: FDA-Public Use
  Company Number: NVSJ2020JP010561

PATIENT
  Age: 93 Year
  Sex: Female

DRUGS (1)
  1. ENTRESTO [Suspect]
     Active Substance: SACUBITRIL\VALSARTAN
     Indication: CARDIAC FAILURE CHRONIC
     Dosage: 50 MG, 1 DOSE FORMULAR: SACUBITRIL 24.3MG, VALSARTAN 25.7MG
     Route: 048
     Dates: start: 20200910, end: 20200923

REACTIONS (4)
  - Cardiac failure [Fatal]
  - Renal failure [Fatal]
  - Myelodysplastic syndrome [Fatal]
  - Concomitant disease aggravated [Fatal]
